FAERS Safety Report 11582839 (Version 2)
Quarter: 2015Q4

REPORT INFORMATION
  Report Type: Spontaneous
  Country: JP (occurrence: JP)
  Receive Date: 20151001
  Receipt Date: 20151026
  Transmission Date: 20160304
  Serious: Yes (Death)
  Sender: FDA-Public Use
  Company Number: JP-ELI_LILLY_AND_COMPANY-JP201509008701

PATIENT
  Age: 86 Year
  Sex: Male

DRUGS (12)
  1. ISALON [Concomitant]
     Active Substance: UNSPECIFIED INGREDIENT
     Dosage: UNK
  2. DIART [Concomitant]
     Active Substance: AZOSEMIDE
     Dosage: UNK
  3. SIVELESTAT NA [Concomitant]
     Indication: DYSPNOEA
     Dosage: UNK
     Dates: start: 20150827
  4. METHYCOBAL [Concomitant]
     Active Substance: METHYLCOBALAMIN
     Dosage: UNK
     Dates: start: 20150731, end: 20150731
  5. TAKELDA [Concomitant]
     Indication: ANGINA PECTORIS
     Dosage: UNK
     Route: 048
  6. DIOVAN [Concomitant]
     Active Substance: VALSARTAN
     Indication: HYPERTENSION
     Dosage: UNK
  7. SULFAMETHOXAZOLE-TRIMETHOPRIM (SMZ) [Concomitant]
     Active Substance: SULFAMETHOXAZOLE\TRIMETHOPRIM
     Indication: PNEUMOCYSTIS JIROVECII PNEUMONIA
     Dosage: UNK
     Dates: start: 20150831
  8. CEFEPIME [Concomitant]
     Active Substance: CEFEPIME HYDROCHLORIDE
     Indication: C-REACTIVE PROTEIN INCREASED
     Dosage: 2 G, OTHER
  9. PANVITAN                           /07504101/ [Concomitant]
     Dosage: UNK
     Route: 048
     Dates: start: 20150731, end: 20150826
  10. ALIMTA [Suspect]
     Active Substance: PEMETREXED DISODIUM
     Indication: LUNG ADENOCARCINOMA RECURRENT
     Dosage: 600 MG, UNK
     Route: 042
     Dates: start: 20150812, end: 20150812
  11. SELARA [Concomitant]
     Active Substance: EPLERENONE
     Indication: HYPERTENSION
     Dosage: UNK
  12. PREDONINE [Concomitant]
     Active Substance: PREDNISOLONE\PREDNISOLONE ACETATE\PREDNISOLONE SODIUM SUCCINATE
     Indication: INTERSTITIAL LUNG DISEASE
     Dosage: UNK
     Dates: start: 20150824, end: 20150918

REACTIONS (2)
  - Ileus paralytic [Fatal]
  - Pneumatosis intestinalis [Fatal]

NARRATIVE: CASE EVENT DATE: 20150917
